FAERS Safety Report 4278245-3 (Version None)
Quarter: 2004Q1

REPORT INFORMATION
  Report Type: 
  Country: None (occurrence: None)
  Receive Date: 20040121
  Receipt Date: 20040112
  Transmission Date: 20041129
  Serious: Yes (Death, Other)
  Sender: FDA-Public Use
  Company Number: EWC040137571

PATIENT
  Age: 67 Year
  Sex: Male
  Weight: 61 kg

DRUGS (2)
  1. GEMCITABINE HYDROCHLORIDE-IV (GEMCITABINE) [Suspect]
     Indication: PANCREATIC CARCINOMA
     Dosage: 1740 MG
     Dates: start: 20030613
  2. CISPLATIN [Suspect]
     Indication: PANCREATIC CARCINOMA
     Dosage: 120 MG
     Dates: start: 20030613

REACTIONS (5)
  - GASTROINTESTINAL HAEMORRHAGE [None]
  - KARNOFSKY SCALE WORSENED [None]
  - NEUTROPENIC INFECTION [None]
  - PNEUMONIA [None]
  - SEPTIC SHOCK [None]
